FAERS Safety Report 12827241 (Version 1)
Quarter: 2016Q4

REPORT INFORMATION
  Report Type: Spontaneous
  Country: US (occurrence: US)
  Receive Date: 20161006
  Receipt Date: 20161006
  Transmission Date: 20170207
  Serious: No
  Sender: FDA-Public Use
  Company Number: US-INDIVIOR LIMITED-INDV-089882-2016

PATIENT
  Age: 31 Year
  Sex: Female

DRUGS (1)
  1. SUBOXONE [Suspect]
     Active Substance: BUPRENORPHINE HYDROCHLORIDE\NALOXONE HYDROCHLORIDE
     Indication: PAIN
     Dosage: 8 MG, DAILY
     Route: 060
     Dates: start: 20160411, end: 20160413

REACTIONS (6)
  - Intentional underdose [Recovered/Resolved]
  - Off label use [Recovered/Resolved]
  - Hyperhidrosis [Not Recovered/Not Resolved]
  - Hot flush [Not Recovered/Not Resolved]
  - Feeling abnormal [Recovered/Resolved]
  - Emotional poverty [Recovered/Resolved]

NARRATIVE: CASE EVENT DATE: 20160411
